FAERS Safety Report 25487262 (Version 1)
Quarter: 2025Q2

REPORT INFORMATION
  Report Type: Report from Study
  Country: FR (occurrence: FR)
  Receive Date: 20250627
  Receipt Date: 20250627
  Transmission Date: 20250716
  Serious: Yes (Other)
  Sender: RANBAXY
  Company Number: FR-SUN PHARMACEUTICAL INDUSTRIES LTD-2025R1-513733

PATIENT
  Age: 59 Year
  Sex: Male
  Weight: 119 kg

DRUGS (4)
  1. FLUCONAZOLE [Interacting]
     Active Substance: FLUCONAZOLE
     Indication: Product used for unknown indication
     Route: 065
  2. LETERMOVIR [Interacting]
     Active Substance: LETERMOVIR
     Indication: Product used for unknown indication
     Dosage: 480 MILLIGRAM, OD
     Route: 065
  3. LETERMOVIR [Interacting]
     Active Substance: LETERMOVIR
     Dosage: 240 MILLIGRAM, OD
     Route: 065
  4. CYCLOSPORINE [Interacting]
     Active Substance: CYCLOSPORINE
     Indication: Product used for unknown indication
     Route: 065

REACTIONS (2)
  - Drug interaction [Unknown]
  - Acute myelomonocytic leukaemia [Unknown]
